FAERS Safety Report 19145785 (Version 2)
Quarter: 2021Q2

REPORT INFORMATION
  Report Type: Spontaneous
  Country: US (occurrence: US)
  Receive Date: 20210416
  Receipt Date: 20210519
  Transmission Date: 20210717
  Serious: No
  Sender: FDA-Public Use
  Company Number: US-BAYER-2021-122272

PATIENT
  Age: 57 Year
  Sex: Female

DRUGS (1)
  1. MIRALAX [Suspect]
     Active Substance: POLYETHYLENE GLYCOL 3350
     Dosage: 1 DF, QD
     Route: 048
     Dates: start: 202104, end: 20210411

REACTIONS (3)
  - Product odour abnormal [None]
  - Product taste abnormal [None]
  - Eructation [Unknown]

NARRATIVE: CASE EVENT DATE: 202104
